FAERS Safety Report 6064037-1 (Version None)
Quarter: 2009Q1

REPORT INFORMATION
  Report Type: 
  Country: None (occurrence: None)
  Receive Date: 20090204
  Receipt Date: 20090124
  Transmission Date: 20090719
  Serious: Yes (Other)
  Sender: FDA-Public Use
  Company Number: CA-JNJFOC-20090106839

PATIENT

DRUGS (3)
  1. REMICADE [Suspect]
     Dosage: 1ST INFUSION POST SURGERY
     Route: 042
  2. REMICADE [Suspect]
     Dosage: 24TH DOSE
     Route: 042
  3. REMICADE [Suspect]
     Indication: CROHN'S DISEASE
     Dosage: RECEIVED 23 INFUSIONS
     Route: 042

REACTIONS (1)
  - SURGERY [None]
